FAERS Safety Report 12422891 (Version 2)
Quarter: 2020Q4

REPORT INFORMATION
  Report Type: Spontaneous
  Country: DE (occurrence: DE)
  Receive Date: 20160601
  Receipt Date: 20201012
  Transmission Date: 20210113
  Serious: Yes (Death, Life-Threatening, Other)
  Sender: FDA-Public Use
  Company Number: DE-ASTRAZENECA-2016SE56588

PATIENT
  Age: 57 Year
  Sex: Male
  Weight: 80 kg

DRUGS (1)
  1. KOMBOGLYZE [Suspect]
     Active Substance: METFORMIN HYDROCHLORIDE\SAXAGLIPTIN
     Indication: DIABETES MELLITUS
     Route: 048
     Dates: start: 201506, end: 20160408

REACTIONS (20)
  - Death [Fatal]
  - Psoriasis [Recovering/Resolving]
  - Red blood cell count decreased [Unknown]
  - Myelodysplastic syndrome [Not Recovered/Not Resolved]
  - Mucosal inflammation [Unknown]
  - Myelosuppression [Unknown]
  - Cerebral infarction [Unknown]
  - Infection [Unknown]
  - Respiratory failure [Unknown]
  - Respiratory acidosis [Unknown]
  - Leukopenia [Unknown]
  - Pneumonia [Unknown]
  - Haemoglobin decreased [Unknown]
  - Mucosal disorder [Unknown]
  - Oedema [Unknown]
  - Pulmonary function test decreased [Unknown]
  - Anaemia [Not Recovered/Not Resolved]
  - Cytomegalovirus viraemia [Unknown]
  - Graft versus host disease [Unknown]
  - Thrombocytopenia [Unknown]

NARRATIVE: CASE EVENT DATE: 201506
